FAERS Safety Report 6946422-6 (Version None)
Quarter: 2010Q3

REPORT INFORMATION
  Report Type: 
  Country: None (occurrence: None)
  Receive Date: 20100824
  Receipt Date: 20100816
  Transmission Date: 20110219
  Serious: Yes (Death)
  Sender: FDA-Public Use
  Company Number: 2010US003308

PATIENT
  Age: 69 Year
  Sex: Female
  Weight: 66 kg

DRUGS (19)
  1. PROGRAF [Suspect]
     Indication: LUNG TRANSPLANT
     Dosage: 1.5 MG, BID, ORAL
     Route: 048
     Dates: start: 20021215, end: 20100308
  2. AZITHROMYCIN [Concomitant]
  3. COMBIVENT (IPRATROPIUM BROMIDE) [Concomitant]
  4. ASPIRIN [Concomitant]
  5. PREDNISONE TAB [Concomitant]
  6. SPIRIVA [Concomitant]
  7. MEVACOR [Concomitant]
  8. VALCYTE [Concomitant]
  9. BACTRIM DS [Concomitant]
  10. MG-PLUS PROTEIN (MAGNESIUM) [Concomitant]
  11. MULTIVITAMIN [Concomitant]
  12. OSCAL (VITAMIN D NOS) [Concomitant]
  13. VITAMIN C (SODIUM ASCORBATE) [Concomitant]
  14. ADVAIR DISKUS 100/50 [Concomitant]
  15. BETA-CAROTENE (BETACAROTENE) [Concomitant]
  16. FOLATE (FOLIC ACID) [Concomitant]
  17. GLUCOTROL [Concomitant]
  18. OMEPRAZOLE [Concomitant]
  19. RAMIPRIL [Concomitant]

REACTIONS (1)
  - DEATH [None]
